FAERS Safety Report 9557053 (Version 4)
Quarter: 2013Q4

REPORT INFORMATION
  Report Type: Report from Study
  Country: US (occurrence: US)
  Receive Date: 20130926
  Receipt Date: 20131018
  Transmission Date: 20140711
  Serious: Yes (Death)
  Sender: FDA-Public Use
  Company Number: US-ABBVIE-13P-163-1151337-00

PATIENT
  Age: 50 Year
  Sex: Male
  Weight: 73.09 kg

DRUGS (8)
  1. HUMIRA [Suspect]
     Indication: PSORIASIS
     Route: 058
     Dates: start: 20130828, end: 20130922
  2. AMLODIPINE [Concomitant]
     Indication: HYPERTENSION
  3. HYDROCHLOROTHIAZIDE [Concomitant]
     Indication: HYPERTENSION
  4. METHOTREXATE [Concomitant]
     Indication: PSORIASIS
  5. IBUPROFEN [Concomitant]
     Indication: PAIN
  6. HYDROXYZINE [Concomitant]
     Indication: PSORIASIS
  7. TRIAMCINOLONE [Concomitant]
     Indication: PSORIASIS
  8. NIZORAL [Concomitant]
     Indication: PSORIASIS
     Route: 061

REACTIONS (2)
  - Asphyxia [Fatal]
  - Victim of homicide [Fatal]
